FAERS Safety Report 13181109 (Version 1)
Quarter: 2017Q1

REPORT INFORMATION
  Report Type: Spontaneous
  Country: US (occurrence: US)
  Receive Date: 20170202
  Receipt Date: 20170202
  Transmission Date: 20170428
  Serious: No
  Sender: FDA-Public Use
  Company Number: US-SMITH AND NEPHEW, INC-2016SMT00731

PATIENT
  Sex: Female

DRUGS (3)
  1. REGRANEX [Suspect]
     Active Substance: BECAPLERMIN
     Indication: SKIN ULCER
     Dosage: UNK UNK, 1X/DAY
     Route: 061
     Dates: start: 201608, end: 201608
  2. COLLAGENASE SANTYL [Suspect]
     Active Substance: COLLAGENASE CLOSTRIDIUM HISTOLYTICUM
     Indication: ULCER
     Dosage: UNK
  3. UNSPECIFIED RHEUMATOID ARTHRITIS MEDICINE [Concomitant]
     Indication: RHEUMATOID ARTHRITIS

REACTIONS (4)
  - Wound complication [Recovering/Resolving]
  - Drug effect incomplete [Unknown]
  - Off label use [Unknown]
  - Wound infection [Recovering/Resolving]
